FAERS Safety Report 8517099-3 (Version None)
Quarter: 2012Q3

REPORT INFORMATION
  Report Type: 
  Country: None (occurrence: None)
  Receive Date: 20120706
  Receipt Date: 20120625
  Transmission Date: 20120928
  Serious: Yes (Death)
  Sender: FDA-Public Use
  Company Number: JP-2012-15638

PATIENT
  Age: 75 Year
  Sex: Male

DRUGS (5)
  1. PLETAL [Suspect]
     Dosage: ORAL
     Route: 048
  2. NAFAMOSTAT MESILATE (NAFAMOSTAT MESILATE) INJECTION [Concomitant]
  3. ADRENOCORTICAL HORMONE PREPARATIONS [Concomitant]
  4. HEPARIN AND PREPARATIONS (HEPARIN AND PREPARATIONS) INJECTION [Concomitant]
  5. WARFARIN SODIUM [Concomitant]

REACTIONS (3)
  - PNEUMONIA [None]
  - ATRIAL FIBRILLATION [None]
  - CEREBRAL INFARCTION [None]
